FAERS Safety Report 4539035-7 (Version None)
Quarter: 2004Q4

REPORT INFORMATION
  Report Type: 
  Country: None (occurrence: None)
  Receive Date: 20041222
  Receipt Date: 20041213
  Transmission Date: 20050328
  Serious: Yes (Other)
  Sender: FDA-Public Use
  Company Number: 2004110914

PATIENT
  Age: 32 Year
  Sex: Female
  Weight: 74.8435 kg

DRUGS (1)
  1. ZANTAC 75 [Suspect]
     Indication: DYSPEPSIA
     Dosage: 12 TABLETS DAILY, ORAL
     Route: 048

REACTIONS (4)
  - CARDIAC DISORDER [None]
  - COAGULOPATHY [None]
  - OVERDOSE [None]
  - RECTAL HAEMORRHAGE [None]
